FAERS Safety Report 6845529-1 (Version None)
Quarter: 2010Q3

REPORT INFORMATION
  Report Type: 
  Country: None (occurrence: None)
  Receive Date: 20100713
  Receipt Date: 20100627
  Transmission Date: 20110219
  Serious: Yes (Other)
  Sender: FDA-Public Use
  Company Number: 2010080719

PATIENT
  Age: 54 Year
  Sex: Female
  Weight: 72.6 kg

DRUGS (4)
  1. FRAGMIN [Suspect]
     Indication: LOWER LIMB FRACTURE
     Dosage: 5000 IU, 1X/DAY
  2. FRAGMIN [Suspect]
     Indication: POSTOPERATIVE CARE
     Dosage: 5000 IU, 1X/DAY
  3. FRAGMIN [Suspect]
     Indication: THROMBOSIS PROPHYLAXIS
     Dosage: 5000 IU, 1X/DAY
  4. MORPHINE [Suspect]

REACTIONS (2)
  - DRUG DOSE OMISSION [None]
  - VISUAL ACUITY REDUCED [None]
